FAERS Safety Report 7567904-2 (Version None)
Quarter: 2011Q2

REPORT INFORMATION
  Report Type: 
  Country: None (occurrence: None)
  Receive Date: 20110616
  Receipt Date: 20110607
  Transmission Date: 20111010
  Serious: Yes (Death, Hospitalization)
  Sender: FDA-Public Use
  Company Number: 2010CP000180

PATIENT
  Age: 19 Year
  Sex: Female
  Weight: 35 kg

DRUGS (4)
  1. PERFALGAN (PARACETAMOL) [Suspect]
     Indication: ARTHRALGIA
     Dosage: 20 DOSAGE FORM;TOTAL;IV
     Route: 042
     Dates: start: 20080618, end: 20080622
  2. TRAMADOL HCL [Concomitant]
  3. ACEAMINOPHEN [Concomitant]
  4. SEVOFLURANE [Suspect]
     Dosage: 1 DOSAGE FORM;INH
     Route: 055

REACTIONS (17)
  - COAGULOPATHY [None]
  - DRUG ADMINISTRATION ERROR [None]
  - HYPOTENSION [None]
  - CARDIAC ARREST [None]
  - REYE'S SYNDROME [None]
  - AGGRESSION [None]
  - MALAISE [None]
  - WHITE BLOOD CELL COUNT INCREASED [None]
  - HEPATIC FAILURE [None]
  - MEDICATION ERROR [None]
  - NAUSEA [None]
  - MYOCARDIAL INFARCTION [None]
  - OVERDOSE [None]
  - TOXICITY TO VARIOUS AGENTS [None]
  - CONFUSIONAL STATE [None]
  - VOMITING [None]
  - PNEUMONIA PRIMARY ATYPICAL [None]
